FAERS Safety Report 18188034 (Version 1)
Quarter: 2020Q3

REPORT INFORMATION
  Report Type: Spontaneous
  Country: DE (occurrence: DE)
  Receive Date: 20200824
  Receipt Date: 20200824
  Transmission Date: 20201103
  Serious: Yes (Hospitalization)
  Sender: FDA-Public Use
  Company Number: DE-TEVA-2020-DE-1817109

PATIENT
  Age: 84 Year
  Sex: Male

DRUGS (8)
  1. PHENPROCOUMON [Concomitant]
     Active Substance: PHENPROCOUMON
     Dosage: 3 MG, ACCORDING TO INR
  2. TRAMADOL. [Concomitant]
     Active Substance: TRAMADOL
     Dosage: 100 MILLIGRAM DAILY;  0?0?1?0
  3. RAMIPRIL. [Suspect]
     Active Substance: RAMIPRIL
     Dosage: 5 MILLIGRAM DAILY; 1?0?1?0
     Route: 065
  4. BISOPROLOL [Concomitant]
     Active Substance: BISOPROLOL
     Dosage: 1 DOSAGE FORMS DAILY; 10 MG, 0.5?0?0.5?0
  5. PREGABALIN. [Concomitant]
     Active Substance: PREGABALIN
     Dosage: 75 MILLIGRAM DAILY; 0?0?1?0
  6. METAMIZOL [Concomitant]
     Active Substance: METAMIZOLE SODIUM
     Dosage: 1500 MILLIGRAM DAILY; 1?1?1?0
  7. XIPAMID [Suspect]
     Active Substance: XIPAMIDE
     Dosage: .5 DOSAGE FORMS DAILY; 20 MG, 0.5?0?0?0
  8. TORASEMID [Suspect]
     Active Substance: TORSEMIDE
     Dosage: 40 MILLIGRAM DAILY; 1?1?0?0
     Route: 065

REACTIONS (7)
  - Drug level increased [Unknown]
  - Asthenia [Unknown]
  - International normalised ratio increased [Unknown]
  - General physical health deterioration [Unknown]
  - Prothrombin time shortened [Unknown]
  - Renal impairment [Unknown]
  - Dyspnoea [Unknown]
